FAERS Safety Report 5288031-3 (Version None)
Quarter: 2007Q1

REPORT INFORMATION
  Report Type: 
  Country: None (occurrence: None)
  Receive Date: 20070330
  Receipt Date: 20070322
  Transmission Date: 20070707
  Serious: Yes (Hospitalization)
  Sender: FDA-Public Use
  Company Number: 2007SP003258

PATIENT
  Age: 81 Year
  Sex: Male
  Weight: 75.7507 kg

DRUGS (15)
  1. ASMANEX TWISTHALER [Suspect]
     Indication: ASTHMA
     Dosage: 2 DF; BID; PO
     Route: 048
     Dates: start: 20061109
  2. PRAZOSIN HCL [Concomitant]
  3. HYDROCHLOROTHIAZIDE [Concomitant]
  4. POTASSIUM CHLORIDE [Concomitant]
  5. LANSOPRAZOLE [Concomitant]
  6. IPRATROPIUM BROMIDE [Concomitant]
  7. ALBUTEROL SULATE [Concomitant]
  8. PROSCAR [Concomitant]
  9. CALCIUM OYSTER SHELL WITH VITAMIN D [Concomitant]
  10. CENTRUM SILVER WITH LUTEIN [Concomitant]
  11. TYLENOL [Concomitant]
  12. GENTEAL [Concomitant]
  13. FLAXSEED OIL [Concomitant]
  14. MYLANTA [Concomitant]
  15. 527 POLYTH GLYC [Concomitant]

REACTIONS (4)
  - DEVICE BREAKAGE [None]
  - PHARMACEUTICAL PRODUCT COMPLAINT [None]
  - PNEUMONIA [None]
  - WRONG TECHNIQUE IN DRUG USAGE PROCESS [None]
